FAERS Safety Report 8383601-8 (Version None)
Quarter: 2012Q2

REPORT INFORMATION
  Report Type: 
  Country: None (occurrence: None)
  Receive Date: 20120524
  Receipt Date: 20120515
  Transmission Date: 20120825
  Serious: Yes (Life-Threatening, Hospitalization)
  Sender: FDA-Public Use
  Company Number: US-BAYER-2012-047482

PATIENT
  Age: 64 Year
  Sex: Female
  Weight: 102 kg

DRUGS (9)
  1. OXYCONTIN [Concomitant]
  2. NAPROXEN (ALEVE) [Suspect]
     Indication: OSTEOARTHRITIS
  3. ATARAX [Concomitant]
  4. CYMBALTA [Concomitant]
  5. ADVAIR DISKUS 100/50 [Concomitant]
  6. PERCOCET [Concomitant]
  7. ELAVIL [Concomitant]
  8. NAPROXEN (ALEVE) [Suspect]
     Indication: ARTHRITIS
     Dosage: 440 MG, PRN
     Route: 048
     Dates: start: 20111101, end: 20111223
  9. LYRICA [Concomitant]

REACTIONS (8)
  - SWELLING [None]
  - VOMITING [None]
  - GENERALISED ERYTHEMA [None]
  - INCOHERENT [None]
  - FEELING HOT [None]
  - DYSPNOEA [None]
  - HYPOTENSION [None]
  - RENAL FAILURE ACUTE [None]
